FAERS Safety Report 16628802 (Version 2)
Quarter: 2019Q3

REPORT INFORMATION
  Report Type: Spontaneous
  Country: DE (occurrence: DE)
  Receive Date: 20190725
  Receipt Date: 20190809
  Transmission Date: 20191004
  Serious: Yes (Hospitalization)
  Sender: FDA-Public Use
  Company Number: DE-TEVA-2019-DE-1081295

PATIENT
  Age: 85 Year
  Sex: Male

DRUGS (2)
  1. MELPERONE [Suspect]
     Active Substance: MELPERONE
     Indication: POSTOPERATIVE DELIRIUM
     Dosage: 10 MILLIGRAM DAILY; 10MG: 0-0-1
     Route: 065
  2. QUETIAPINE. [Suspect]
     Active Substance: QUETIAPINE
     Indication: POSTOPERATIVE DELIRIUM
     Dosage: 50 MILLIGRAM DAILY; 50MG: 0-0-1
     Route: 065

REACTIONS (3)
  - Overdose [Recovered/Resolved]
  - Cognitive disorder [Recovered/Resolved]
  - Somnolence [Recovered/Resolved]
